FAERS Safety Report 8461261-5 (Version None)
Quarter: 2012Q2

REPORT INFORMATION
  Report Type: 
  Country: None (occurrence: None)
  Receive Date: 20120625
  Receipt Date: 20120611
  Transmission Date: 20120825
  Serious: Yes (Other)
  Sender: FDA-Public Use
  Company Number: FR-RANBAXY-2012RR-56990

PATIENT
  Age: 74 Year
  Sex: Female
  Weight: 60 kg

DRUGS (5)
  1. FLECAINIDE ACETATE [Interacting]
     Indication: CARDIOMYOPATHY
  2. LIDOCAINE AND EPINEPHRINE [Interacting]
     Dosage: 100 MG, UNK
     Route: 042
  3. FLECAINIDE ACETATE [Interacting]
     Indication: TACHYCARDIA
  4. FLECAINIDE ACETATE [Suspect]
     Indication: ATRIAL FIBRILLATION
     Route: 065
  5. LIDOCAINE AND EPINEPHRINE [Interacting]
     Indication: ANAESTHESIA
     Dosage: 300 MG, UNK
     Route: 042

REACTIONS (3)
  - NEUROTOXICITY [None]
  - DRUG INTERACTION [None]
  - MYOCLONUS [None]
